FAERS Safety Report 6134036-X (Version None)
Quarter: 2009Q1

REPORT INFORMATION
  Report Type: 
  Country: None (occurrence: None)
  Receive Date: 20090326
  Receipt Date: 20090318
  Transmission Date: 20090719
  Serious: Yes (Hospitalization)
  Sender: FDA-Public Use
  Company Number: SE-ELI_LILLY_AND_COMPANY-SE200903004455

PATIENT
  Sex: Female

DRUGS (3)
  1. DULOXETINE HYDROCHLORIDE [Suspect]
     Indication: DEPRESSION
     Dosage: UNK, UNKNOWN
     Route: 048
     Dates: start: 20090117, end: 20090101
  2. ATARAX [Concomitant]
     Dosage: UNK, UNKNOWN
     Route: 065
  3. BETOLVEX [Concomitant]
     Dosage: 1 MG, UNKNOWN
     Route: 048

REACTIONS (3)
  - DIZZINESS [None]
  - DYSTONIA [None]
  - PALPITATIONS [None]
